FAERS Safety Report 16043654 (Version 5)
Quarter: 2020Q4

REPORT INFORMATION
  Report Type: Spontaneous
  Country: US (occurrence: US)
  Receive Date: 20190306
  Receipt Date: 20201030
  Transmission Date: 20210113
  Serious: Yes (Other)
  Sender: FDA-Public Use
  Company Number: US-ASTRAZENECA-2018SF65579

PATIENT
  Age: 26303 Day
  Sex: Male
  Weight: 99.8 kg

DRUGS (102)
  1. LYRICA [Concomitant]
     Active Substance: PREGABALIN
     Indication: MYALGIA
     Dosage: 50 MG
     Dates: start: 20160922, end: 20161022
  2. CEFACLOR. [Concomitant]
     Active Substance: CEFACLOR
     Indication: ANTIBIOTIC ASSOCIATED COLITIS
     Dosage: 500 MG
     Dates: start: 20150329, end: 20150430
  3. POLYETHYLENE GLYCOL [Concomitant]
     Active Substance: POLYETHYLENE GLYCOLS
     Indication: CONSTIPATION
     Dates: start: 20070214
  4. ATORVASTATIN [Concomitant]
     Active Substance: ATORVASTATIN
     Indication: BLOOD CHOLESTEROL INCREASED
     Dosage: 20 MG
     Dates: start: 20130128, end: 20140313
  5. AMLODIPINE BESYLATE. [Concomitant]
     Active Substance: AMLODIPINE BESYLATE
     Indication: BLOOD PRESSURE MEASUREMENT
     Dosage: 5 MG
     Dates: start: 20080502
  6. MELOXICAM. [Concomitant]
     Active Substance: MELOXICAM
     Indication: ARTHRITIS
     Route: 065
     Dates: start: 20090922, end: 20091022
  7. CIPROFLOXACIN. [Concomitant]
     Active Substance: CIPROFLOXACIN
     Route: 065
     Dates: start: 20090922, end: 20091022
  8. METRONIDAZOLE. [Concomitant]
     Active Substance: METRONIDAZOLE
  9. AZITHROMYCIN ANHYDROUS. [Concomitant]
     Active Substance: AZITHROMYCIN ANHYDROUS
  10. GABAPENTIN. [Concomitant]
     Active Substance: GABAPENTIN
  11. PREDNISONE. [Concomitant]
     Active Substance: PREDNISONE
     Dosage: 10 MG
     Dates: start: 20100517, end: 20100524
  12. CIPROFLOXACIN HCL [Concomitant]
     Active Substance: CIPROFLOXACIN HYDROCHLORIDE
     Indication: SICK BUILDING SYNDROME
     Dosage: 500 MG
     Dates: start: 20120125, end: 20120205
  13. CIPROFLOXACIN HCL [Concomitant]
     Active Substance: CIPROFLOXACIN HYDROCHLORIDE
     Indication: INFECTION
     Dosage: 500 MG
     Dates: start: 20120125, end: 20120205
  14. LIPITOR [Concomitant]
     Active Substance: ATORVASTATIN CALCIUM
     Indication: BLOOD CHOLESTEROL INCREASED
     Dosage: 20 MG
     Dates: start: 20170711, end: 20170811
  15. LIPITOR [Concomitant]
     Active Substance: ATORVASTATIN CALCIUM
     Indication: BLOOD CHOLESTEROL INCREASED
     Dosage: 20 MG
     Dates: start: 20151204
  16. LYRICA [Concomitant]
     Active Substance: PREGABALIN
     Indication: NEURALGIA
     Dosage: 50 MG
     Dates: start: 20170120, end: 20170520
  17. ZELNORM [Concomitant]
     Active Substance: TEGASEROD MALEATE
     Indication: MUSCLE SPASMS
     Dates: start: 20070226, end: 20070326
  18. AMLODIPINE BESYLATE. [Concomitant]
     Active Substance: AMLODIPINE BESYLATE
     Indication: BLOOD PRESSURE MEASUREMENT
     Dosage: 10 MG
     Dates: start: 20151021
  19. NEXIUM [Suspect]
     Active Substance: ESOMEPRAZOLE MAGNESIUM
     Indication: GASTROOESOPHAGEAL REFLUX DISEASE
     Route: 048
     Dates: start: 20070917, end: 20150924
  20. NEXIUM [Suspect]
     Active Substance: ESOMEPRAZOLE MAGNESIUM
     Indication: GASTROOESOPHAGEAL REFLUX DISEASE
     Dosage: GENERIC
     Route: 065
     Dates: start: 20160204, end: 20170411
  21. NEXIUM 24HR [Suspect]
     Active Substance: ESOMEPRAZOLE MAGNESIUM
     Indication: GASTROOESOPHAGEAL REFLUX DISEASE
     Route: 048
     Dates: start: 20110205, end: 20130822
  22. PREDNISONE. [Concomitant]
     Active Substance: PREDNISONE
     Dosage: 10 MG
     Dates: start: 20120322, end: 20120327
  23. CIPROFLOXACIN HCL [Concomitant]
     Active Substance: CIPROFLOXACIN HYDROCHLORIDE
     Indication: SICK BUILDING SYNDROME
     Dosage: 500 MG
     Dates: start: 20090518
  24. CIPROFLOXACIN HCL [Concomitant]
     Active Substance: CIPROFLOXACIN HYDROCHLORIDE
     Indication: SICK BUILDING SYNDROME
     Dosage: 500 MG
     Dates: start: 20100927, end: 20101015
  25. DOXAZOSIN [Concomitant]
     Active Substance: DOXAZOSIN MESYLATE
     Indication: URINARY TRACT DISORDER
     Dosage: 8 MG
     Dates: start: 20060118, end: 20060318
  26. DICYCLOMINE [Concomitant]
     Active Substance: DICYCLOMINE HYDROCHLORIDE
     Indication: MUSCLE SPASMS
     Dosage: 10 MG
     Dates: start: 20070214, end: 20070226
  27. TRAZODONE [Concomitant]
     Active Substance: TRAZODONE HYDROCHLORIDE
     Indication: INSOMNIA
     Dosage: 50 MG
     Dates: start: 20091104
  28. IRBESARTAN. [Concomitant]
     Active Substance: IRBESARTAN
     Indication: BLOOD PRESSURE ABNORMAL
     Dosage: 300 MG
     Dates: start: 20150311, end: 20171209
  29. CEPHALEXIN. [Concomitant]
     Active Substance: CEPHALEXIN
  30. LYRICA [Concomitant]
     Active Substance: PREGABALIN
     Indication: MYALGIA
     Dosage: 50 MG
     Dates: start: 20170120, end: 20170520
  31. AZITHROMYCIN ANHYDROUS. [Concomitant]
     Active Substance: AZITHROMYCIN ANHYDROUS
     Indication: ANTIBIOTIC ASSOCIATED COLITIS
     Dosage: 250 MG
     Dates: start: 20120612, end: 20120617
  32. AMOXICILLIN. [Concomitant]
     Active Substance: AMOXICILLIN
     Indication: GASTRIC ULCER
     Dosage: 875 MG
     Dates: start: 20100517, end: 20100527
  33. VITAMIN D [Concomitant]
     Active Substance: VITAMIN D NOS
     Indication: VITAMIN D DECREASED
     Dates: start: 1996
  34. ASPIRIN. [Concomitant]
     Active Substance: ASPIRIN
     Dosage: 81 MG
     Dates: start: 1995
  35. OXYCODONE ACETAMINOPHEN [Concomitant]
     Active Substance: ACETAMINOPHEN\OXYCODONE HYDROCHLORIDE
     Indication: PAIN
     Dates: start: 20131003, end: 20131023
  36. HALFLYTELY BISACODYL BOWEL KIT [Concomitant]
     Indication: PROSTATE ABLATION
     Dates: start: 20130311, end: 20130311
  37. LUMIGAN [Concomitant]
     Active Substance: BIMATOPROST
     Indication: CATARACT
     Dosage: SOLUTION
     Dates: start: 20140823, end: 20140910
  38. NEXIUM [Suspect]
     Active Substance: ESOMEPRAZOLE MAGNESIUM
     Indication: GASTROOESOPHAGEAL REFLUX DISEASE
     Route: 048
     Dates: start: 20070917, end: 20150924
  39. LIPITOR [Concomitant]
     Active Substance: ATORVASTATIN CALCIUM
     Indication: BLOOD CHOLESTEROL INCREASED
     Dosage: 20 MG
     Dates: start: 20110205
  40. GABAPENTIN. [Concomitant]
     Active Substance: GABAPENTIN
     Indication: LIMB DEFORMITY
     Dosage: 100 MG
     Dates: start: 20160127
  41. VIAGRA [Concomitant]
     Active Substance: SILDENAFIL CITRATE
     Indication: ERECTILE DYSFUNCTION
     Dosage: 100 MG
     Dates: start: 20121007, end: 20121007
  42. ZELNORM [Concomitant]
     Active Substance: TEGASEROD MALEATE
     Indication: ABDOMINAL PAIN
     Dates: start: 20070226, end: 20070326
  43. ATORVASTATIN [Concomitant]
     Active Substance: ATORVASTATIN
     Indication: BLOOD CHOLESTEROL INCREASED
     Dosage: 20 MG
     Dates: start: 20150311, end: 20170909
  44. PREDNISONE. [Concomitant]
     Active Substance: PREDNISONE
     Dosage: 10 MG
     Dates: start: 20060321
  45. CIPROFLOXACIN HCL [Concomitant]
     Active Substance: CIPROFLOXACIN HYDROCHLORIDE
     Indication: INFECTION
     Dosage: 500 MG
     Dates: start: 20090518
  46. HYDROCODONE-APAP [Concomitant]
     Active Substance: ACETAMINOPHEN\HYDROCODONE
     Indication: PAIN
     Dates: start: 20150329, end: 20150421
  47. TEMAZEPAM. [Concomitant]
     Active Substance: TEMAZEPAM
     Dosage: 15 MG
     Dates: start: 20091104, end: 20091204
  48. CARVEDILOL. [Concomitant]
     Active Substance: CARVEDILOL
     Dosage: 12.5 MG
     Dates: start: 20100330, end: 20100615
  49. IRBESARTAN. [Concomitant]
     Active Substance: IRBESARTAN
     Indication: BLOOD PRESSURE ABNORMAL
     Dosage: 300 MG
     Dates: start: 20160129
  50. LYRICA [Concomitant]
     Active Substance: PREGABALIN
     Indication: ILL-DEFINED DISORDER
     Dosage: 50 MG
     Dates: start: 20160922, end: 20161022
  51. AMOXICILLIN. [Concomitant]
     Active Substance: AMOXICILLIN
     Indication: GASTRIC ULCER
     Dosage: 500 MG
     Dates: start: 20120511, end: 20120530
  52. AMOXICILLIN-CLAVULNATE [Concomitant]
  53. ONDANSETRON HYDROCHLORIDE. [Concomitant]
     Active Substance: ONDANSETRON HYDROCHLORIDE
     Indication: NAUSEA
     Dosage: 4 MG
     Dates: start: 20150329, end: 20150430
  54. ILEVRO [Concomitant]
     Active Substance: NEPAFENAC
     Indication: INFLAMMATION
     Dosage: OPTHALMIC DROP
     Dates: start: 20140909, end: 20141215
  55. AMLODIPINE BESYLATE. [Concomitant]
     Active Substance: AMLODIPINE BESYLATE
     Indication: BLOOD PRESSURE MEASUREMENT
     Dosage: 10 MG
     Dates: start: 20131127, end: 20140227
  56. IRBESARTAN. [Concomitant]
     Active Substance: IRBESARTAN
  57. NEXIUM [Suspect]
     Active Substance: ESOMEPRAZOLE MAGNESIUM
     Indication: GASTROOESOPHAGEAL REFLUX DISEASE
     Route: 048
     Dates: start: 20150311, end: 20151224
  58. NEXIUM [Suspect]
     Active Substance: ESOMEPRAZOLE MAGNESIUM
     Indication: GASTROOESOPHAGEAL REFLUX DISEASE
     Route: 048
     Dates: start: 20150311, end: 20151224
  59. GABAPENTIN. [Concomitant]
     Active Substance: GABAPENTIN
     Indication: LIMB DEFORMITY
     Dosage: 100 MG
     Dates: start: 20160127, end: 20170403
  60. LYRICA [Concomitant]
     Active Substance: PREGABALIN
     Indication: NEURALGIA
     Dosage: 50 MG
     Dates: start: 20160922, end: 20161022
  61. LYRICA [Concomitant]
     Active Substance: PREGABALIN
     Indication: ILL-DEFINED DISORDER
     Dosage: 50 MG
     Dates: start: 20170120, end: 20170520
  62. METRONIDAZOLE. [Concomitant]
     Active Substance: METRONIDAZOLE
     Indication: SICK BUILDING SYNDROME
     Dosage: 500 MG
     Dates: start: 20170221, end: 20170228
  63. AMOXICILLIN. [Concomitant]
     Active Substance: AMOXICILLIN
     Indication: INFECTION
     Dosage: 500 MG
     Dates: start: 20120511, end: 20120530
  64. DOXYCYCLINE HYCLATE. [Concomitant]
     Active Substance: DOXYCYCLINE HYCLATE
     Indication: INFECTION
     Dosage: 100 MG
     Dates: start: 20120710, end: 20120805
  65. BENZONATATE. [Concomitant]
     Active Substance: BENZONATATE
     Indication: COUGH
     Dosage: 200 MG
     Dates: start: 20120502, end: 20120510
  66. BESIVANCE [Concomitant]
     Active Substance: BESIFLOXACIN
     Indication: CATARACT
     Dosage: SUSPENSION
     Dates: start: 20140909, end: 20141215
  67. FLUTICASONE. [Concomitant]
     Active Substance: FLUTICASONE
     Indication: HYPERSENSITIVITY
     Dosage: 500 MCG
     Dates: start: 20080609, end: 20090221
  68. FLUTICASONE. [Concomitant]
     Active Substance: FLUTICASONE
     Indication: HYPOSMIA
     Dosage: 500 MCG
     Dates: start: 20080609, end: 20090221
  69. AMLODIPINE BESYLATE. [Concomitant]
     Active Substance: AMLODIPINE BESYLATE
     Indication: BLOOD PRESSURE MEASUREMENT
     Dosage: 10 MG
     Dates: start: 20150311, end: 20171011
  70. NEXIUM [Suspect]
     Active Substance: ESOMEPRAZOLE MAGNESIUM
     Indication: GASTROOESOPHAGEAL REFLUX DISEASE
     Route: 048
  71. NEXIUM [Suspect]
     Active Substance: ESOMEPRAZOLE MAGNESIUM
     Indication: GASTROOESOPHAGEAL REFLUX DISEASE
     Route: 065
     Dates: start: 20070917
  72. NEXIUM 24HR [Suspect]
     Active Substance: ESOMEPRAZOLE MAGNESIUM
     Indication: GASTROOESOPHAGEAL REFLUX DISEASE
     Route: 048
     Dates: start: 2018
  73. NEXIUM 24HR [Suspect]
     Active Substance: ESOMEPRAZOLE MAGNESIUM
     Indication: GASTROOESOPHAGEAL REFLUX DISEASE
     Route: 048
     Dates: start: 20140602, end: 20150117
  74. CIPROFLOXACIN HCL [Concomitant]
     Active Substance: CIPROFLOXACIN HYDROCHLORIDE
     Indication: INFECTION
     Dosage: 500 MG
     Dates: start: 20100927, end: 20101015
  75. DICYCLOMINE [Concomitant]
     Active Substance: DICYCLOMINE HYDROCHLORIDE
     Indication: ABDOMINAL PAIN
     Dosage: 10 MG
     Dates: start: 20070214, end: 20070226
  76. AZITHROMYCIN ANHYDROUS. [Concomitant]
     Active Substance: AZITHROMYCIN ANHYDROUS
     Indication: ANTIBIOTIC ASSOCIATED COLITIS
     Dosage: 250 MG
     Dates: start: 20170131, end: 20170205
  77. CYPROHEPTADINE. [Concomitant]
     Active Substance: CYPROHEPTADINE
     Indication: HYPERSENSITIVITY
     Dosage: 4 MG
     Dates: start: 20110520, end: 20111116
  78. METHYLPREDNISOLONE. [Concomitant]
     Active Substance: METHYLPREDNISOLONE
     Dosage: 4 MG
     Dates: start: 20110407
  79. HYDROCHLOROTHIAZIDE. [Concomitant]
     Active Substance: HYDROCHLOROTHIAZIDE
     Indication: BLOOD PRESSURE MEASUREMENT
     Dosage: 12.5 MG
     Dates: start: 20130923, end: 20131218
  80. ATORVASTATIN [Concomitant]
     Active Substance: ATORVASTATIN
     Indication: BLOOD CHOLESTEROL INCREASED
     Dosage: 20 MG
     Dates: start: 20121103
  81. AMLODIPINE BESYLATE. [Concomitant]
     Active Substance: AMLODIPINE BESYLATE
     Indication: BLOOD PRESSURE MEASUREMENT
     Dosage: 10 MG
     Dates: start: 20110205, end: 20110809
  82. ATORVASTATIN [Concomitant]
     Active Substance: ATORVASTATIN
  83. NEXIUM [Suspect]
     Active Substance: ESOMEPRAZOLE MAGNESIUM
     Indication: GASTROOESOPHAGEAL REFLUX DISEASE
     Route: 048
  84. NEXIUM [Suspect]
     Active Substance: ESOMEPRAZOLE MAGNESIUM
     Indication: GASTROOESOPHAGEAL REFLUX DISEASE
     Dosage: GENERIC
     Route: 065
     Dates: start: 20160204, end: 20170411
  85. NEXIUM [Suspect]
     Active Substance: ESOMEPRAZOLE MAGNESIUM
     Indication: GASTROOESOPHAGEAL REFLUX DISEASE
     Route: 048
     Dates: start: 20131127, end: 20140227
  86. NEXIUM [Suspect]
     Active Substance: ESOMEPRAZOLE MAGNESIUM
     Indication: GASTROOESOPHAGEAL REFLUX DISEASE
     Route: 048
     Dates: start: 20131127, end: 20140227
  87. AZITHROMYCIN ANHYDROUS. [Concomitant]
     Active Substance: AZITHROMYCIN ANHYDROUS
     Indication: INFECTION
     Dosage: 250 MG
     Dates: start: 20170131, end: 20170205
  88. AZITHROMYCIN ANHYDROUS. [Concomitant]
     Active Substance: AZITHROMYCIN ANHYDROUS
     Indication: INFECTION
     Dosage: 250 MG
     Dates: start: 20120612, end: 20120617
  89. AMOXICILLIN. [Concomitant]
     Active Substance: AMOXICILLIN
     Indication: INFECTION
     Dosage: 875 MG
     Dates: start: 20100517, end: 20100527
  90. AMOXICILLIN. [Concomitant]
     Active Substance: AMOXICILLIN
     Indication: GASTRIC ULCER
     Dosage: 125 MG
     Dates: start: 20120801, end: 20120810
  91. AMOXICILLIN. [Concomitant]
     Active Substance: AMOXICILLIN
     Indication: INFECTION
     Dosage: 125 MG
     Dates: start: 20120801, end: 20120810
  92. ZELNORM [Concomitant]
     Active Substance: TEGASEROD MALEATE
     Indication: CONSTIPATION
     Dates: start: 20070226, end: 20070326
  93. HYDROCHLOROTHIAZIDE. [Concomitant]
     Active Substance: HYDROCHLOROTHIAZIDE
     Indication: HYPERTENSION
     Dosage: 12.5 MG
     Dates: start: 20130923, end: 20131218
  94. HYDROCODONE CHLORPHENIRAMINE [Concomitant]
     Indication: COUGH
     Dates: start: 20131223
  95. DUREZOL [Concomitant]
     Active Substance: DIFLUPREDNATE
     Indication: CATARACT
     Dosage: EMULSION
     Dates: start: 20140909, end: 20141215
  96. ILEVRO [Concomitant]
     Active Substance: NEPAFENAC
     Indication: EYE PAIN
     Dosage: OPTHALMIC DROP
     Dates: start: 20140909, end: 20141215
  97. NEXIUM [Suspect]
     Active Substance: ESOMEPRAZOLE MAGNESIUM
     Indication: GASTROOESOPHAGEAL REFLUX DISEASE
     Route: 065
     Dates: start: 20070917
  98. CIPROFLOXACIN HCL [Concomitant]
     Active Substance: CIPROFLOXACIN HYDROCHLORIDE
     Indication: SICK BUILDING SYNDROME
     Dosage: 500 MG
     Dates: start: 20170221, end: 20170228
  99. CIPROFLOXACIN HCL [Concomitant]
     Active Substance: CIPROFLOXACIN HYDROCHLORIDE
     Indication: INFECTION
     Dosage: 500 MG
     Dates: start: 20170221, end: 20170228
  100. HYDROCODONE-APAP [Concomitant]
     Active Substance: ACETAMINOPHEN\HYDROCODONE
     Indication: PAIN
     Dates: start: 20130430, end: 20130530
  101. LIPITOR [Concomitant]
     Active Substance: ATORVASTATIN CALCIUM
     Indication: BLOOD CHOLESTEROL INCREASED
     Dosage: 20 MG
     Dates: start: 20110509
  102. GABAPENTIN. [Concomitant]
     Active Substance: GABAPENTIN
     Indication: LIMB DEFORMITY
     Dosage: 100 MG
     Dates: start: 20150929, end: 20151203

REACTIONS (4)
  - Hyperparathyroidism secondary [Unknown]
  - Chronic kidney disease [Not Recovered/Not Resolved]
  - Renal cyst [Not Recovered/Not Resolved]
  - Nephrogenic anaemia [Unknown]

NARRATIVE: CASE EVENT DATE: 20090529
